FAERS Safety Report 4790160-5 (Version None)
Quarter: 2005Q3

REPORT INFORMATION
  Report Type: 
  Country: None (occurrence: None)
  Receive Date: 20050914
  Receipt Date: 20040803
  Transmission Date: 20060218
  Serious: Yes (Other)
  Sender: FDA-Public Use
  Company Number: 163-20785-04050425

PATIENT
  Age: 43 Year
  Sex: Female

DRUGS (2)
  1. THALOMID [Suspect]
     Indication: METASTASIS
     Dosage: 100 MG, DAILY, ORAL
     Route: 048
     Dates: start: 20030501, end: 20040514
  2. THALOMID [Suspect]
     Indication: SMALL CELL LUNG CANCER STAGE UNSPECIFIED
     Dosage: 100 MG, DAILY, ORAL
     Route: 048
     Dates: start: 20030501, end: 20040514

REACTIONS (2)
  - DISEASE PROGRESSION [None]
  - NEUTROPENIA [None]
